FAERS Safety Report 14953887 (Version 2)
Quarter: 2018Q2

REPORT INFORMATION
  Report Type: Spontaneous
  Country: JP (occurrence: JP)
  Receive Date: 20180530
  Receipt Date: 20180614
  Transmission Date: 20180711
  Serious: Yes (Hospitalization)
  Sender: FDA-Public Use
  Company Number: JP-BAYER-2018-099083

PATIENT
  Age: 69 Year
  Sex: Female
  Weight: 47 kg

DRUGS (9)
  1. BAYASPIRIN 100 MG [Suspect]
     Active Substance: ASPIRIN
     Dosage: DAILY DOSE 100 MG
  2. ALLOPURINOL. [Concomitant]
     Active Substance: ALLOPURINOL
     Dosage: DAILY DOSE 50 MG
  3. SEVELAMER HYDROCHLORIDE [Concomitant]
     Active Substance: SEVELAMER HYDROCHLORIDE
     Dosage: DAILY DOSE 2250 MG
  4. RALOXIFENE HYDROCHLORIDE. [Concomitant]
     Active Substance: RALOXIFENE HYDROCHLORIDE
     Dosage: DAILY DOSE 60 MG
  5. REBAMIPIDE [Concomitant]
     Active Substance: REBAMIPIDE
     Dosage: DAILY DOSE 300 MG
  6. CALCIUM CARBONATE. [Concomitant]
     Active Substance: CALCIUM CARBONATE
     Dosage: DAILY DOSE 1000 MG
  7. CINACALCET HYDROCHLORIDE. [Concomitant]
     Active Substance: CINACALCET HYDROCHLORIDE
     Dosage: DAILY DOSE 25 MG
  8. LEVOTHYROXINE SODIUM. [Concomitant]
     Active Substance: LEVOTHYROXINE SODIUM
  9. ESOMEPRAZOLE [Concomitant]
     Active Substance: ESOMEPRAZOLE
     Dosage: DAILY DOSE 20 MG
     Route: 048

REACTIONS (2)
  - Oesophageal ulcer haemorrhage [Recovering/Resolving]
  - Oesophagitis haemorrhagic [Recovering/Resolving]
